FAERS Safety Report 9306208 (Version 1)
Quarter: 2013Q2

REPORT INFORMATION
  Report Type: Spontaneous
  Country: US (occurrence: None)
  Receive Date: 20130429
  Receipt Date: 20130429
  Transmission Date: 20140414
  Serious: Yes (Death, Other)
  Sender: FDA-Public Use
  Company Number: 2013035533

PATIENT
  Age: 5 Year
  Sex: Male

DRUGS (4)
  1. FACTOR VIII/WVF CONCENTRATE [Suspect]
     Indication: IMMUNE TOLERANCE INDUCTION
  2. RFVIIA [Suspect]
  3. FEIBA [Suspect]
  4. ANTICOAGULANTS [Suspect]

REACTIONS (8)
  - Off label use [None]
  - Haemoptysis [None]
  - Dyspnoea [None]
  - Cardiomegaly [None]
  - Right ventricular failure [None]
  - Pulmonary embolism [None]
  - Pulmonary haemorrhage [None]
  - Pneumothorax [None]
